FAERS Safety Report 14220129 (Version 2)
Quarter: 2018Q1

REPORT INFORMATION
  Report Type: Spontaneous
  Country: US (occurrence: US)
  Receive Date: 20171123
  Receipt Date: 20180123
  Transmission Date: 20180508
  Serious: Yes (Hospitalization)
  Sender: FDA-Public Use
  Company Number: US-JNJFOC-20170910141

PATIENT
  Sex: Male
  Weight: 63.5 kg

DRUGS (3)
  1. LITHIUM. [Suspect]
     Active Substance: LITHIUM
     Indication: PRODUCT USED FOR UNKNOWN INDICATION
     Route: 048
  2. RISPERIDONE. [Suspect]
     Active Substance: RISPERIDONE
     Indication: AGGRESSION
     Route: 048
     Dates: start: 2008, end: 2011
  3. RISPERIDONE. [Suspect]
     Active Substance: RISPERIDONE
     Indication: BORDERLINE PERSONALITY DISORDER
     Route: 048
     Dates: start: 2008, end: 2011

REACTIONS (17)
  - Abnormal behaviour [Recovered/Resolved]
  - Paraesthesia [Unknown]
  - Medication error [Unknown]
  - Fear [Recovered/Resolved]
  - Anger [Recovered/Resolved]
  - Product use in unapproved indication [Unknown]
  - Paranoia [Recovered/Resolved]
  - Withdrawal syndrome [Recovered/Resolved]
  - Thinking abnormal [Recovered/Resolved]
  - Anxiety [Recovered/Resolved]
  - Suicidal ideation [Unknown]
  - Decreased interest [Recovered/Resolved]
  - Aggression [Recovering/Resolving]
  - Restlessness [Recovered/Resolved]
  - Mental disorder [Recovered/Resolved]
  - Adverse drug reaction [Recovered/Resolved]
  - Off label use [Unknown]

NARRATIVE: CASE EVENT DATE: 2009
